FAERS Safety Report 5548987-8 (Version None)
Quarter: 2007Q4

REPORT INFORMATION
  Report Type: 
  Country: None (occurrence: None)
  Receive Date: 20071211
  Receipt Date: 20070323
  Transmission Date: 20080405
  Serious: No
  Sender: FDA-Public Use
  Company Number: US-AMGEN-KDL215090

PATIENT
  Sex: Female

DRUGS (1)
  1. ENBREL [Suspect]
     Indication: RHEUMATOID ARTHRITIS
     Dates: start: 20061019

REACTIONS (5)
  - ARTHRALGIA [None]
  - BONE PAIN [None]
  - FATIGUE [None]
  - PAIN OF SKIN [None]
  - SINUSITIS [None]
